FAERS Safety Report 24945266 (Version 1)
Quarter: 2025Q1

REPORT INFORMATION
  Report Type: Spontaneous
  Country: CA (occurrence: CA)
  Receive Date: 20250209
  Receipt Date: 20250209
  Transmission Date: 20250409
  Serious: Yes (Other)
  Sender: AUROBINDO
  Company Number: CA-AUROBINDO-AUR-APL-2025-006237

PATIENT
  Age: 48 Year
  Sex: Female

DRUGS (1)
  1. DULOXETINE [Suspect]
     Active Substance: DULOXETINE
     Indication: Product used for unknown indication
     Route: 065

REACTIONS (5)
  - Abdominal pain [Unknown]
  - Hypoglycaemia [Unknown]
  - Hypophagia [Unknown]
  - Nausea [Unknown]
  - Vomiting [Unknown]
